FAERS Safety Report 24769377 (Version 1)
Quarter: 2024Q4

REPORT INFORMATION
  Report Type: Spontaneous
  Country: US (occurrence: None)
  Receive Date: 20241223
  Receipt Date: 20241223
  Transmission Date: 20250114
  Serious: No
  Sender: Public
  Company Number: None

PATIENT
  Age: 34 Year
  Sex: Male
  Weight: 160 kg

DRUGS (1)
  1. TIRZEPATIDE [Suspect]
     Active Substance: TIRZEPATIDE
     Indication: Weight decreased
     Dosage: OTHER FREQUENCY : QWEEK;?
     Route: 058
     Dates: start: 20240808, end: 20240830

REACTIONS (5)
  - Nausea [None]
  - Dizziness [None]
  - Depression [None]
  - Palpitations [None]
  - Vomiting [None]

NARRATIVE: CASE EVENT DATE: 20240812
